FAERS Safety Report 15017984 (Version 3)
Quarter: 2018Q3

REPORT INFORMATION
  Report Type: Spontaneous
  Country: US (occurrence: US)
  Receive Date: 20180615
  Receipt Date: 20180907
  Transmission Date: 20181010
  Serious: Yes (Hospitalization)
  Sender: FDA-Public Use
  Company Number: US-PFIZER INC-2017488968

PATIENT
  Age: 76 Year
  Sex: Female
  Weight: 77.55 kg

DRUGS (3)
  1. IBRANCE [Suspect]
     Active Substance: PALBOCICLIB
     Indication: BREAST CANCER METASTATIC
     Dosage: 125 MG, CYCLIC (TAKEN WITH FOOD DAILY FOR X 3 OUT OF 4 WEEKS / 21 DAYS AND THEN OFF FOR 7 DAYS)
     Dates: start: 20170703
  2. IBRANCE [Suspect]
     Active Substance: PALBOCICLIB
     Dosage: 125 MG, CYCLIC, (TAKEN WITH FOOD FOR 21 DAYS AND THEN OFF FOR 7 DAYS / D1?21 Q 28 DAYS)
     Route: 048
     Dates: start: 201608, end: 20180605
  3. LETROZOLE. [Concomitant]
     Active Substance: LETROZOLE
     Dosage: UNK

REACTIONS (12)
  - Drug dose omission [Recovered/Resolved]
  - Muscular weakness [Recovered/Resolved]
  - Sinus disorder [Not Recovered/Not Resolved]
  - Lacrimation increased [Unknown]
  - Respiratory tract congestion [Unknown]
  - Cough [Unknown]
  - Decreased immune responsiveness [Unknown]
  - Neoplasm progression [Unknown]
  - Stress [Unknown]
  - Sinus headache [Unknown]
  - Hypersensitivity [Unknown]
  - Sneezing [Unknown]

NARRATIVE: CASE EVENT DATE: 20180605
